FAERS Safety Report 17165609 (Version 2)
Quarter: 2019Q4

REPORT INFORMATION
  Report Type: Report from Study
  Country: GB (occurrence: GB)
  Receive Date: 20191217
  Receipt Date: 20191219
  Transmission Date: 20200122
  Serious: Yes (Death, Hospitalization)
  Sender: FDA-Public Use
  Company Number: GB-CELGENEUS-GBR-20191205391

PATIENT
  Age: 63 Year
  Sex: Male

DRUGS (2)
  1. POMALIDOMIDE [Suspect]
     Active Substance: POMALIDOMIDE
     Indication: PLASMA CELL MYELOMA
     Route: 048
     Dates: start: 20180601, end: 20180621
  2. DEXAMETHASONE ORAL [Suspect]
     Active Substance: DEXAMETHASONE
     Indication: PLASMA CELL MYELOMA
     Route: 048
     Dates: start: 20180601, end: 20180622

REACTIONS (1)
  - Plasma cell myeloma [Fatal]

NARRATIVE: CASE EVENT DATE: 20191119
